FAERS Safety Report 12093739 (Version 1)
Quarter: 2016Q1

REPORT INFORMATION
  Report Type: Spontaneous
  Country: US (occurrence: US)
  Receive Date: 20160219
  Receipt Date: 20160219
  Transmission Date: 20160526
  Serious: Yes (Other)
  Sender: FDA-Public Use
  Company Number: US-PFIZER INC-2016091963

PATIENT
  Age: 84 Year
  Sex: Female
  Weight: 92.8 kg

DRUGS (17)
  1. LETROZOLE. [Suspect]
     Active Substance: LETROZOLE
     Indication: BREAST CANCER METASTATIC
     Dosage: 2.5,  ONCE DAY
     Dates: start: 20150902, end: 20160115
  2. ATENOLOL. [Concomitant]
     Active Substance: ATENOLOL
     Dosage: 75 MG, UNK
  3. HYDROCODONE [Concomitant]
     Active Substance: HYDROCODONE
     Dosage: 1 TABLET,  EVERY 6 HOURS, AS NEEDED (PNR)
     Route: 048
  4. LASIX [Concomitant]
     Active Substance: FUROSEMIDE
     Dosage: 40 MG, DAILY
  5. SYNTHROID [Concomitant]
     Active Substance: LEVOTHYROXINE SODIUM
     Dosage: 25 UG, DAILY
  6. VITAMIN D [Concomitant]
     Active Substance: CHOLECALCIFEROL
     Dosage: 5000 IU, ONCE EVERY 30 DAYS
  7. NITROSTAT [Concomitant]
     Active Substance: NITROGLYCERIN
     Dosage: AS NEEDED (PRN)
  8. ZOFRAN [Concomitant]
     Active Substance: ONDANSETRON HYDROCHLORIDE
     Dosage: 8 MG, EVERY 8 HOURS, AS NEEDED (PRN)
  9. AMPHETAMINE [Concomitant]
     Active Substance: AMPHETAMINE
     Dosage: 1 TABLET EVERY 6 HOURS, AS NEEDED (PRN)
     Route: 048
  10. INSULIN [Concomitant]
     Active Substance: INSULIN NOS
     Dosage: 10 IU, DAILY
  11. HUMALOG [Concomitant]
     Active Substance: INSULIN LISPRO
  12. PROTONIX [Concomitant]
     Active Substance: PANTOPRAZOLE SODIUM
     Dosage: 40 MG, DAILY
  13. CALTRATE [Concomitant]
     Active Substance: CALCIUM CARBONATE
     Dosage: 2 DF, DAILY
     Route: 048
  14. LANTUS [Concomitant]
     Active Substance: INSULIN GLARGINE
  15. IBRANCE [Suspect]
     Active Substance: PALBOCICLIB
     Indication: BREAST CANCER METASTATIC
     Dosage: 100 MG, DAILY
     Route: 048
     Dates: start: 20150902, end: 20160115
  16. ASPIRIN. [Concomitant]
     Active Substance: ASPIRIN
     Dosage: 325 MG, DAILY
  17. VASOTEC [Concomitant]
     Active Substance: ENALAPRIL MALEATE
     Dosage: 5 MG, UNK

REACTIONS (3)
  - Asthenia [Recovering/Resolving]
  - Meningioma [Unknown]
  - Second primary malignancy [Unknown]

NARRATIVE: CASE EVENT DATE: 201512
